FAERS Safety Report 6063940-6 (Version None)
Quarter: 2009Q1

REPORT INFORMATION
  Report Type: 
  Country: None (occurrence: None)
  Receive Date: 20090204
  Receipt Date: 20090126
  Transmission Date: 20090719
  Serious: Yes (Other)
  Sender: FDA-Public Use
  Company Number: PHHY2008US33539

PATIENT
  Sex: Male

DRUGS (2)
  1. LIORESAL [Suspect]
     Indication: MUSCLE SPASTICITY
     Route: 037
  2. BACLOFEN [Suspect]
     Route: 048

REACTIONS (8)
  - ERYTHEMA [None]
  - GAIT DISTURBANCE [None]
  - HYPERTONIA [None]
  - IMPLANT SITE INFECTION [None]
  - INCISIONAL DRAINAGE [None]
  - PYREXIA [None]
  - SOMNOLENCE [None]
  - SWELLING [None]
